FAERS Safety Report 6236018-6 (Version None)
Quarter: 2009Q2

REPORT INFORMATION
  Report Type: 
  Country: None (occurrence: None)
  Receive Date: 20090619
  Receipt Date: 20090612
  Transmission Date: 20091009
  Serious: Yes (Death, Life-Threatening, Other)
  Sender: FDA-Public Use
  Company Number: JP-BRISTOL-MYERS SQUIBB COMPANY-14575484

PATIENT
  Age: 54 Year
  Sex: Male

DRUGS (16)
  1. SPRYCEL [Suspect]
     Indication: CHRONIC MYELOID LEUKAEMIA
     Route: 048
     Dates: start: 20090330, end: 20090401
  2. AMBISOME [Suspect]
     Dosage: INITIATED ON 30MAR09
     Route: 042
     Dates: start: 20090401, end: 20090401
  3. VINDESINE SULFATE [Concomitant]
     Dates: start: 20090318, end: 20090318
  4. PREDNISOLONE [Concomitant]
     Dosage: 29MAR09-01APR09;02APR09-03APR09
     Dates: start: 20090329, end: 20090403
  5. OMEPRAZOLE [Concomitant]
  6. CEFEPIME [Concomitant]
     Dosage: CEFEPIME DIHYDROCHLORIDE HYDRATE
     Dates: start: 20090331, end: 20090403
  7. IMATINIB MESILATE [Concomitant]
     Dates: start: 20080514, end: 20090329
  8. VINCRISTINE SULFATE [Concomitant]
     Dates: start: 20090123, end: 20090211
  9. AMPHOTERICIN B [Concomitant]
     Dates: start: 20090330, end: 20090401
  10. ITRACONAZOLE [Concomitant]
     Dates: start: 20090218, end: 20090401
  11. DINOPROST [Concomitant]
     Dates: end: 20090401
  12. MICAFUNGIN SODIUM [Concomitant]
     Dates: start: 20090331, end: 20090404
  13. ZOPICLONE [Concomitant]
     Dates: start: 20090402, end: 20090404
  14. ZOPICLONE [Concomitant]
     Dates: start: 20090402, end: 20090404
  15. DOBUTAMINE HCL [Concomitant]
     Dates: start: 20090402, end: 20090404
  16. TRANEXAMIC ACID [Concomitant]
     Dates: start: 20090401, end: 20090401

REACTIONS (9)
  - ACUTE PULMONARY OEDEMA [None]
  - BLOOD CREATINE PHOSPHOKINASE INCREASED [None]
  - GASTROINTESTINAL HAEMORRHAGE [None]
  - GENERALISED OEDEMA [None]
  - MULTI-ORGAN FAILURE [None]
  - MUSCULAR WEAKNESS [None]
  - PULMONARY HAEMORRHAGE [None]
  - RENAL FAILURE [None]
  - SHOCK HAEMORRHAGIC [None]
